FAERS Safety Report 5086017-5 (Version None)
Quarter: 2006Q3

REPORT INFORMATION
  Report Type: 
  Country: None (occurrence: None)
  Receive Date: 20060817
  Receipt Date: 20060807
  Transmission Date: 20061208
  Serious: Yes (Hospitalization)
  Sender: FDA-Public Use
  Company Number: CERZ-11124

PATIENT
  Age: 3 Year
  Sex: Female
  Weight: 15 kg

DRUGS (21)
  1. CEREZYME [Suspect]
     Indication: GAUCHER'S DISEASE
     Dosage: 1000 UNITS Q2WKS IV
     Route: 042
     Dates: start: 20030729
  2. CEREZYME [Suspect]
  3. CEREZYME [Suspect]
  4. CEREZYME [Suspect]
  5. CEREZYME [Suspect]
  6. CEREZYME [Suspect]
  7. UNSPECIFIED MEDICATION [Suspect]
     Indication: DRUG USE FOR UNKNOWN INDICATION
  8. CYPROHEPTADINE HCL [Concomitant]
  9. TIDANIDINE HYDROCHLORIDE [Concomitant]
  10. TRICHLORETHYL PHOSPHATE SODIUM [Concomitant]
  11. BIFIDOBACTERIUM [Concomitant]
  12. MELATONIN [Concomitant]
  13. TPN [Concomitant]
  14. SODIUM, POTASSIUM, MAGNESIUM COMBINED DRUG [Concomitant]
  15. BORIC ACID AND INORGANIC SALTS COMBINED DRUG [Concomitant]
  16. BISACODYL [Concomitant]
  17. HEPARINOID [Concomitant]
  18. CARBOCISTEINE [Concomitant]
  19. PROCATEROL HCL [Concomitant]
  20. BROMHEXINE HYDROCHLORIDE [Concomitant]
  21. HYDROXYZINE PAMOATE [Concomitant]

REACTIONS (7)
  - ARTHRITIS BACTERIAL [None]
  - BLOOD ALKALINE PHOSPHATASE INCREASED [None]
  - CONJUNCTIVITIS [None]
  - ECZEMA [None]
  - GAMMA-GLUTAMYLTRANSFERASE INCREASED [None]
  - OSTEOMYELITIS [None]
  - RADIUS FRACTURE [None]
